FAERS Safety Report 21781607 (Version 1)
Quarter: 2022Q4

REPORT INFORMATION
  Report Type: Report from Study
  Country: US (occurrence: US)
  Receive Date: 20221227
  Receipt Date: 20221227
  Transmission Date: 20230112
  Serious: Yes (Other)
  Sender: FDA-Public Use
  Company Number: US-ABBVIE-4250375

PATIENT
  Age: 51 Year
  Sex: Female

DRUGS (9)
  1. RINVOQ [Suspect]
     Active Substance: UPADACITINIB
     Indication: Psoriasis
     Route: 048
  2. VITAMIN D3 [Concomitant]
     Active Substance: CHOLECALCIFEROL
     Indication: Product used for unknown indication
     Dosage: 25 MCG
  3. MELATONIN W/B6 [Concomitant]
     Indication: Product used for unknown indication
     Dosage: 1MG-1 OM
  4. MAGNESIUM [Concomitant]
     Active Substance: MAGNESIUM
     Indication: Product used for unknown indication
     Route: 048
  5. OTEZLA [Concomitant]
     Active Substance: APREMILAST
     Indication: Product used for unknown indication
  6. 20 mg Furosemide [Concomitant]
     Indication: Product used for unknown indication
     Route: 048
  7. DAILY-VITE [Concomitant]
     Indication: Product used for unknown indication
     Dosage: 400 MCG
  8. OMEGA-3 ACIDS [Concomitant]
     Active Substance: OMEGA-3 FATTY ACIDS
     Indication: Product used for unknown indication
     Dosage: 1000 MG
  9. IRON [Concomitant]
     Active Substance: IRON
     Indication: Product used for unknown indication
     Route: 048

REACTIONS (2)
  - Temporomandibular joint surgery [Unknown]
  - Swelling [Unknown]

NARRATIVE: CASE EVENT DATE: 20221220
